FAERS Safety Report 5660051-6 (Version None)
Quarter: 2008Q1

REPORT INFORMATION
  Report Type: 
  Country: None (occurrence: None)
  Receive Date: 20080311
  Receipt Date: 20070830
  Transmission Date: 20080703
  Serious: No
  Sender: FDA-Public Use
  Company Number: US-BAYER-200712793BCC

PATIENT
  Age: 21 Year
  Sex: Male
  Weight: 95 kg

DRUGS (2)
  1. ALEVE (CAPLET) [Suspect]
     Indication: DRUG USE FOR UNKNOWN INDICATION
     Dosage: TOTAL DAILY DOSE: 660 MG  UNIT DOSE: 220 MG
     Route: 048
     Dates: start: 20070829
  2. OMNICEF [Concomitant]

REACTIONS (2)
  - ERYTHEMA [None]
  - VOMITING [None]
